FAERS Safety Report 5081853-3 (Version None)
Quarter: 2006Q3

REPORT INFORMATION
  Report Type: 
  Country: None (occurrence: None)
  Receive Date: 20060816
  Receipt Date: 20060808
  Transmission Date: 20061208
  Serious: Yes (Hospitalization, Other)
  Sender: FDA-Public Use
  Company Number: US-JNJFOC-20060500420

PATIENT
  Sex: Female
  Weight: 55.79 kg

DRUGS (16)
  1. REMICADE [Suspect]
     Indication: RHEUMATOID ARTHRITIS
     Route: 042
  2. METHOTREXATE [Concomitant]
     Route: 048
  3. METHOTREXATE [Concomitant]
     Route: 048
  4. LEXAPRO [Concomitant]
     Route: 048
  5. LEXAPRO [Concomitant]
     Route: 048
  6. METHOCARBAMOL [Concomitant]
  7. DARVON [Concomitant]
  8. XANAX [Concomitant]
  9. LASIX [Concomitant]
  10. FOLIC ACID [Concomitant]
     Route: 048
  11. CALCIUM CARBONATE [Concomitant]
  12. ATIVAN [Concomitant]
     Dosage: EVERY 4 HOURS A NEEDED
     Route: 048
  13. ATIVAN [Concomitant]
     Indication: ANXIETY
     Route: 048
  14. LOVENOX [Concomitant]
  15. AVAPRO [Concomitant]
  16. ACETAMINOPHEN [Concomitant]
     Dosage: EVERY 6 HOURS AS NEEDED.
     Route: 048

REACTIONS (16)
  - ALANINE AMINOTRANSFERASE INCREASED [None]
  - ANAEMIA OF CHRONIC DISEASE [None]
  - ASPARTATE AMINOTRANSFERASE INCREASED [None]
  - ATRIAL FIBRILLATION [None]
  - DIARRHOEA [None]
  - FALL [None]
  - IRON DEFICIENCY ANAEMIA [None]
  - LOSS OF CONSCIOUSNESS [None]
  - MYOCARDIAL INFARCTION [None]
  - PNEUMOCOCCAL BACTERAEMIA [None]
  - PNEUMONIA STREPTOCOCCAL [None]
  - RENAL FAILURE ACUTE [None]
  - SINUS TACHYCARDIA [None]
  - SUPRAVENTRICULAR EXTRASYSTOLES [None]
  - SYNCOPE [None]
  - TACHYCARDIA [None]
